FAERS Safety Report 5951704-0 (Version None)
Quarter: 2008Q4

REPORT INFORMATION
  Report Type: 
  Country: None (occurrence: None)
  Receive Date: 20081113
  Receipt Date: 20081105
  Transmission Date: 20090506
  Serious: Yes (Hospitalization, Other)
  Sender: FDA-Public Use
  Company Number: DE-ELI_LILLY_AND_COMPANY-DE200702000627

PATIENT
  Age: 50 Year
  Sex: Female

DRUGS (4)
  1. GEMZAR [Suspect]
     Indication: BLADDER CANCER
     Dosage: 500 MG, UNKNOWN
     Route: 042
     Dates: start: 20061214
  2. GEMZAR [Suspect]
     Dosage: 1000 MG, UNKNOWN
     Route: 042
  3. GEMZAR [Suspect]
     Dosage: 1600 MG, UNKNOWN
     Route: 042
     Dates: end: 20070130
  4. CISPLATIN [Concomitant]
     Dosage: 110 MG, UNK
     Route: 042
     Dates: start: 20061214, end: 20070130

REACTIONS (9)
  - AMNESIA [None]
  - BLOOD AMYLASE INCREASED [None]
  - BLOOD CREATININE INCREASED [None]
  - GRAND MAL CONVULSION [None]
  - HEADACHE [None]
  - LIPASE INCREASED [None]
  - MALIGNANT NEOPLASM PROGRESSION [None]
  - PSYCHOTIC DISORDER DUE TO A GENERAL MEDICAL CONDITION [None]
  - VASCULITIS CEREBRAL [None]
